FAERS Safety Report 13602815 (Version 2)
Quarter: 2017Q2

REPORT INFORMATION
  Report Type: Spontaneous
  Country: TN (occurrence: TN)
  Receive Date: 20170601
  Receipt Date: 20170613
  Transmission Date: 20170830
  Serious: Yes (Life-Threatening, Hospitalization, Other)
  Sender: FDA-Public Use
  Company Number: TN-ABBVIE-17P-160-1994223-00

PATIENT
  Age: 30 Year
  Sex: Male

DRUGS (5)
  1. SODIUM VALPROATE [Suspect]
     Active Substance: VALPROATE SODIUM
     Indication: BIPOLAR I DISORDER
     Route: 065
  2. CLOZAPINE. [Suspect]
     Active Substance: CLOZAPINE
     Indication: MANIA
     Route: 065
  3. LITHIUM. [Suspect]
     Active Substance: LITHIUM
     Indication: BIPOLAR I DISORDER
     Route: 065
  4. OLANZAPINE. [Suspect]
     Active Substance: OLANZAPINE
     Indication: BIPOLAR I DISORDER
     Route: 065
  5. HALOPERIDOL. [Suspect]
     Active Substance: HALOPERIDOL
     Indication: BIPOLAR I DISORDER
     Route: 065

REACTIONS (19)
  - Diabetes mellitus [Unknown]
  - Inflammatory marker increased [Unknown]
  - Electrocardiogram T wave abnormal [Unknown]
  - Odynophagia [Unknown]
  - Hepatitis [Unknown]
  - Drug reaction with eosinophilia and systemic symptoms [Recovering/Resolving]
  - Pancreatitis [Unknown]
  - Drug ineffective [Unknown]
  - Pyrexia [Unknown]
  - Reticulocyte count decreased [Unknown]
  - Haematuria [Unknown]
  - Microalbuminuria [Unknown]
  - Blood creatinine increased [Unknown]
  - Influenza like illness [Unknown]
  - Normochromic normocytic anaemia [Unknown]
  - Thyroid function test abnormal [Unknown]
  - Renal impairment [Unknown]
  - Haematology test abnormal [Unknown]
  - Lymphocyte morphology abnormal [Unknown]
